FAERS Safety Report 8857217 (Version 2)
Quarter: 2013Q1

REPORT INFORMATION
  Report Type: Spontaneous
  Country: US (occurrence: US)
  Receive Date: 20121024
  Receipt Date: 20130104
  Transmission Date: 20140127
  Serious: No
  Sender: FDA-Public Use
  Company Number: US-ELI_LILLY_AND_COMPANY-US201210005519

PATIENT
  Sex: Male

DRUGS (9)
  1. FORTEO [Suspect]
     Indication: OSTEOPOROSIS
     Dosage: 20 UG, QD
  2. DULCOLAX [Concomitant]
     Dosage: UNK UNK, QD
  3. DOCUSATE [Concomitant]
     Dosage: UNK, QD
  4. OMEPRAZOLE [Concomitant]
     Dosage: UNK
  5. CALCIUM + VITAMIN D [Concomitant]
     Dosage: UNK, QD
  6. FLOMAX [Concomitant]
     Dosage: UNK, QD
  7. MULTIVITAMIN [Concomitant]
     Dosage: UNK, QD
  8. MIRALAX [Concomitant]
     Dosage: UNK, QD
  9. TYLENOL                                 /SCH/ [Concomitant]
     Dosage: UNK, QD

REACTIONS (15)
  - Constipation [Unknown]
  - Hypertension [Unknown]
  - Dandruff [Unknown]
  - Benign prostatic hyperplasia [Unknown]
  - Nephrolithiasis [Unknown]
  - Anaemia [Unknown]
  - Gastrooesophageal reflux disease [Unknown]
  - Oedema [Unknown]
  - Deep vein thrombosis [Unknown]
  - Decreased appetite [Unknown]
  - Mitral valve disease [Unknown]
  - Seborrhoeic dermatitis [Unknown]
  - Kyphosis [Unknown]
  - Haemorrhoids [Unknown]
  - Dysphagia [Unknown]
